FAERS Safety Report 19768386 (Version 1)
Quarter: 2021Q3

REPORT INFORMATION
  Report Type: Spontaneous
  Country: US (occurrence: US)
  Receive Date: 20210831
  Receipt Date: 20210831
  Transmission Date: 20211014
  Serious: No
  Sender: FDA-Public Use
  Company Number: None

PATIENT
  Age: 73 Year
  Sex: Female
  Weight: 49.5 kg

DRUGS (4)
  1. SYNTHROID [Concomitant]
     Active Substance: LEVOTHYROXINE SODIUM
  2. CRESTOR [Concomitant]
     Active Substance: ROSUVASTATIN CALCIUM
  3. LEVOFLOXACIN 500 MG TABLET [Suspect]
     Active Substance: LEVOFLOXACIN
     Indication: URINARY TRACT INFECTION
     Dosage: ?          QUANTITY:1 TABLET(S);?
     Route: 048
     Dates: start: 20210625, end: 20210626
  4. MOBIC [Concomitant]
     Active Substance: MELOXICAM

REACTIONS (6)
  - Weight bearing difficulty [None]
  - Nausea [None]
  - Insomnia [None]
  - Joint swelling [None]
  - Arthralgia [None]
  - Oedema peripheral [None]

NARRATIVE: CASE EVENT DATE: 20210801
